FAERS Safety Report 16642809 (Version 2)
Quarter: 2019Q3

REPORT INFORMATION
  Report Type: Spontaneous
  Country: US (occurrence: US)
  Receive Date: 20190729
  Receipt Date: 20190916
  Transmission Date: 20191004
  Serious: No
  Sender: FDA-Public Use
  Company Number: US-PFIZER INC-2019320352

PATIENT
  Age: 82 Year
  Sex: Female

DRUGS (3)
  1. CELEBREX [Suspect]
     Active Substance: CELECOXIB
     Dosage: 200 MG, 1X/DAY
  2. CELEBREX [Suspect]
     Active Substance: CELECOXIB
     Indication: RHEUMATOID ARTHRITIS
     Dosage: 200 MG, 2X/DAY (12 YEARS AGO)
     Route: 048
     Dates: start: 2007
  3. CELEBREX [Suspect]
     Active Substance: CELECOXIB
     Indication: TENDON RUPTURE
     Dosage: 100 MG, 1X/DAY

REACTIONS (1)
  - Tendon rupture [Not Recovered/Not Resolved]
